FAERS Safety Report 18306103 (Version 1)
Quarter: 2020Q3

REPORT INFORMATION
  Report Type: Spontaneous
  Country: US (occurrence: US)
  Receive Date: 20200923
  Receipt Date: 20200923
  Transmission Date: 20201105
  Serious: No
  Sender: FDA-Public Use
  Company Number: US-AMGEN-USASP2020153900

PATIENT
  Age: 42 Year
  Sex: Female

DRUGS (5)
  1. OZANIMOD. [Suspect]
     Active Substance: OZANIMOD
     Indication: MULTIPLE SCLEROSIS
     Dosage: 0.92 MILLIGRAM, QD
     Route: 048
     Dates: start: 20200806
  2. AIMOVIG [Suspect]
     Active Substance: ERENUMAB-AOOE
     Indication: MIGRAINE
     Dosage: UNK
     Route: 065
     Dates: start: 20200727
  3. CELEBREX [Concomitant]
     Active Substance: CELECOXIB
     Indication: PRODUCT USED FOR UNKNOWN INDICATION
     Dosage: UNK
  4. MAXALT [Concomitant]
     Active Substance: RIZATRIPTAN BENZOATE
     Indication: HEADACHE
     Dosage: UNK
  5. OZANIMOD. [Suspect]
     Active Substance: OZANIMOD
     Dosage: UNK (INCREASED DOSE)
     Route: 048
     Dates: start: 202008

REACTIONS (7)
  - Increased tendency to bruise [Unknown]
  - Myalgia [Unknown]
  - Vomiting [Unknown]
  - Fatigue [Unknown]
  - Pain in extremity [Not Recovered/Not Resolved]
  - Muscular weakness [Not Recovered/Not Resolved]
  - Migraine [Unknown]

NARRATIVE: CASE EVENT DATE: 2020
